FAERS Safety Report 7632125-1 (Version None)
Quarter: 2011Q3

REPORT INFORMATION
  Report Type: 
  Country: None (occurrence: None)
  Receive Date: 20110725
  Receipt Date: 20110725
  Transmission Date: 20111222
  Serious: Yes (Life-Threatening, Hospitalization, Disabling)
  Sender: FDA-Public Use
  Company Number: None

PATIENT
  Age: 20 Year
  Sex: Male
  Weight: 63.502 kg

DRUGS (1)
  1. MINOCYCLINE GENERIC FOR MINOCIN [Suspect]
     Indication: ACNE
     Dosage: 1 CAP
     Route: 048
     Dates: start: 20110525, end: 20110723

REACTIONS (3)
  - PENIS DISORDER [None]
  - PERICARDITIS [None]
  - PRURITUS [None]
